FAERS Safety Report 5506109-3 (Version None)
Quarter: 2007Q4

REPORT INFORMATION
  Report Type: 
  Country: None (occurrence: None)
  Receive Date: 20071105
  Receipt Date: 20071031
  Transmission Date: 20080405
  Serious: Yes (Hospitalization, Other)
  Sender: FDA-Public Use
  Company Number: JP-BRISTOL-MYERS SQUIBB COMPANY-13952825

PATIENT
  Age: 59 Year
  Sex: Female

DRUGS (1)
  1. PARAPLATIN [Suspect]
     Indication: TONGUE NEOPLASM MALIGNANT STAGE UNSPECIFIED
     Route: 013
     Dates: start: 20060925, end: 20060925

REACTIONS (3)
  - BREATH SOUNDS ABNORMAL [None]
  - LARYNGEAL OEDEMA [None]
  - PO2 DECREASED [None]
